FAERS Safety Report 26063416 (Version 1)
Quarter: 2025Q4

REPORT INFORMATION
  Report Type: Spontaneous
  Country: RU (occurrence: RU)
  Receive Date: 20251119
  Receipt Date: 20251119
  Transmission Date: 20260118
  Serious: Yes (Hospitalization, Other)
  Sender: ROCHE
  Company Number: RU-ROCHE-10000436667

PATIENT
  Sex: Female

DRUGS (5)
  1. VEMURAFENIB [Suspect]
     Active Substance: VEMURAFENIB
     Indication: Malignant melanoma
     Route: 065
     Dates: start: 201901, end: 202010
  2. VEMURAFENIB [Suspect]
     Active Substance: VEMURAFENIB
     Dosage: FROM DAY 22, 720 MG BID
     Route: 065
     Dates: start: 202301, end: 202302
  3. COTELLIC [Suspect]
     Active Substance: COBIMETINIB FUMARATE
     Indication: Malignant melanoma
     Route: 065
     Dates: start: 202301, end: 202302
  4. ATEZOLIZUMAB [Suspect]
     Active Substance: ATEZOLIZUMAB
     Indication: Malignant melanoma
     Route: 042
     Dates: start: 202302
  5. IFOSFAMIDE [Concomitant]
     Active Substance: IFOSFAMIDE

REACTIONS (6)
  - Disease progression [Unknown]
  - Anaemia [Unknown]
  - Respiratory tract infection viral [Unknown]
  - Acute kidney injury [Unknown]
  - Pyelonephritis [Unknown]
  - Gastric ulcer [Unknown]
